FAERS Safety Report 7268708-0 (Version None)
Quarter: 2011Q1

REPORT INFORMATION
  Report Type: 
  Country: None (occurrence: None)
  Receive Date: 20110124
  Receipt Date: 20110107
  Transmission Date: 20110831
  Serious: Yes (Hospitalization)
  Sender: FDA-Public Use
  Company Number: 011702

PATIENT

DRUGS (1)
  1. LEVETIRACETAM [Suspect]
     Indication: PARTIAL SEIZURES

REACTIONS (3)
  - BLINDNESS TRANSIENT [None]
  - FATIGUE [None]
  - HEADACHE [None]
